FAERS Safety Report 17474207 (Version 1)
Quarter: 2020Q1

REPORT INFORMATION
  Report Type: Spontaneous
  Country: US (occurrence: US)
  Receive Date: 20200228
  Receipt Date: 20200228
  Transmission Date: 20200409
  Serious: No
  Sender: FDA-Public Use
  Company Number: US-EVOLUS, INC.-2020EV000006

PATIENT
  Sex: Female

DRUGS (5)
  1. JEUVEAU [Suspect]
     Active Substance: PRABOTULINUMTOXINA-XVFS
     Indication: PRODUCT USED FOR UNKNOWN INDICATION
  2. AUGMENTIN [Concomitant]
     Active Substance: AMOXICILLIN\CLAVULANATE POTASSIUM
     Indication: WHITE BLOOD CELL COUNT INCREASED
     Route: 048
     Dates: start: 20191202, end: 20191211
  3. JEUVEAU [Suspect]
     Active Substance: PRABOTULINUMTOXINA-XVFS
     Indication: PRODUCT USED FOR UNKNOWN INDICATION
  4. REVANESSE VERSA [Concomitant]
     Indication: PRODUCT USED FOR UNKNOWN INDICATION
     Route: 065
  5. JEUVEAU [Suspect]
     Active Substance: PRABOTULINUMTOXINA-XVFS
     Indication: PRODUCT USED FOR UNKNOWN INDICATION
     Dates: start: 20190803

REACTIONS (17)
  - Palpitations [Unknown]
  - Nasal dryness [Unknown]
  - Arthralgia [Unknown]
  - Vision blurred [Unknown]
  - Diplopia [Unknown]
  - Therapeutic product effect prolonged [Unknown]
  - Oropharyngeal discomfort [Unknown]
  - Burning sensation [Unknown]
  - Oral pain [Unknown]
  - Breath odour [Unknown]
  - Mydriasis [Unknown]
  - Vertigo [Unknown]
  - Eyelid ptosis [Unknown]
  - Confusional state [Unknown]
  - Off label use [Unknown]
  - Nausea [Unknown]
  - Facial neuralgia [Unknown]

NARRATIVE: CASE EVENT DATE: 201908
